FAERS Safety Report 11957518 (Version 3)
Quarter: 2016Q3

REPORT INFORMATION
  Report Type: Report from Study
  Country: CA (occurrence: CA)
  Receive Date: 20160126
  Receipt Date: 20160725
  Transmission Date: 20161109
  Serious: Yes (Death)
  Sender: FDA-Public Use
  Company Number: CA-UCBSA-2016000976

PATIENT
  Age: 70 Year
  Sex: Female

DRUGS (3)
  1. VALSARTAN. [Concomitant]
     Active Substance: VALSARTAN
     Indication: PRODUCT USED FOR UNKNOWN INDICATION
  2. CERTOLIZUMAB PEGOL RA [Suspect]
     Active Substance: CERTOLIZUMAB PEGOL
     Indication: RHEUMATOID ARTHRITIS
     Dosage: 400 MG, EV 2 WEEKS(QOW)
     Route: 058
     Dates: start: 20151116, end: 20151228
  3. NAPROXEN. [Concomitant]
     Active Substance: NAPROXEN
     Indication: PRODUCT USED FOR UNKNOWN INDICATION
     Dosage: 500 MG, 2X/DAY (BID)
     Route: 048

REACTIONS (8)
  - Chills [Unknown]
  - Vomiting [Unknown]
  - Dehydration [Unknown]
  - Hyperhidrosis [Unknown]
  - Pneumonia legionella [Fatal]
  - Asthenia [Unknown]
  - Pyrexia [Unknown]
  - Immunodeficiency [Fatal]

NARRATIVE: CASE EVENT DATE: 201601
